FAERS Safety Report 20947218 (Version 1)
Quarter: 2022Q2

REPORT INFORMATION
  Report Type: Spontaneous
  Country: EE (occurrence: EE)
  Receive Date: 20220610
  Receipt Date: 20220610
  Transmission Date: 20220720
  Serious: Yes (Other)
  Sender: FDA-Public Use
  Company Number: EE-ORIFARM GENETICS A/S-2022EE000234

PATIENT
  Age: 33 Year
  Sex: Male

DRUGS (1)
  1. IBUPROFEN [Suspect]
     Active Substance: IBUPROFEN
     Indication: Fracture
     Dosage: UNK

REACTIONS (2)
  - Large intestinal ulcer [Unknown]
  - Duodenal ulcer [Unknown]
